FAERS Safety Report 5532127-5 (Version None)
Quarter: 2007Q4

REPORT INFORMATION
  Report Type: 
  Country: None (occurrence: None)
  Receive Date: 20071130
  Receipt Date: 20071130
  Transmission Date: 20080405
  Serious: Yes (Disabling)
  Sender: FDA-Public Use
  Company Number: None

PATIENT
  Age: 24 Year
  Sex: Male
  Weight: 90.7194 kg

DRUGS (1)
  1. REMICADE [Suspect]
     Indication: CROHN'S DISEASE
     Dosage: 500MG Q 8 WEEKS IV
     Route: 042
     Dates: start: 20060428, end: 20071029

REACTIONS (3)
  - BLINDNESS TRANSIENT [None]
  - HYPOAESTHESIA [None]
  - PARAESTHESIA [None]
